FAERS Safety Report 12581386 (Version 7)
Quarter: 2018Q2

REPORT INFORMATION
  Report Type: Spontaneous
  Country: US (occurrence: US)
  Receive Date: 20160721
  Receipt Date: 20180410
  Transmission Date: 20180711
  Serious: Yes (Other)
  Sender: FDA-Public Use
  Company Number: US-BRISTOL-MYERS SQUIBB COMPANY-BMS-2016-058713

PATIENT
  Age: 58 Year
  Sex: Female

DRUGS (2)
  1. SPRYCEL [Suspect]
     Active Substance: DASATINIB
     Indication: CHRONIC MYELOID LEUKAEMIA
     Dosage: 80 MG, QD
     Route: 048
     Dates: start: 20160513
  2. SPRYCEL [Suspect]
     Active Substance: DASATINIB
     Indication: PRODUCT USED FOR UNKNOWN INDICATION
     Dosage: 80 MG, QD
     Route: 048
     Dates: start: 20160805

REACTIONS (10)
  - Headache [Unknown]
  - Gastrointestinal disorder [Unknown]
  - Vitreous floaters [Unknown]
  - Vitreous detachment [Unknown]
  - Flatulence [Unknown]
  - Urine abnormality [Unknown]
  - Arthralgia [Unknown]
  - Pain in extremity [Unknown]
  - Tinnitus [Unknown]
  - Hiatus hernia [Unknown]

NARRATIVE: CASE EVENT DATE: 20160804
